FAERS Safety Report 4996567-5 (Version None)
Quarter: 2006Q2

REPORT INFORMATION
  Report Type: 
  Country: None (occurrence: None)
  Receive Date: 20060505
  Receipt Date: 20060420
  Transmission Date: 20061013
  Serious: Yes (Other)
  Sender: FDA-Public Use
  Company Number: TRP_0757_2006

PATIENT
  Age: 51 Year
  Sex: Female
  Weight: 86.1834 kg

DRUGS (4)
  1. RIBASPHERE [Suspect]
     Indication: HEPATITIS C
     Dosage: DF PO
     Route: 048
     Dates: start: 20060106
  2. PEG-INTRON [Suspect]
     Indication: HEPATITIS C
     Dosage: DF SC
     Route: 058
     Dates: start: 20060106
  3. NAPROSYN [Concomitant]
  4. ZOLOFT [Concomitant]

REACTIONS (18)
  - ANXIETY [None]
  - ARTHRALGIA [None]
  - CHEST DISCOMFORT [None]
  - DEHYDRATION [None]
  - DEPRESSION [None]
  - FEAR [None]
  - FEELING ABNORMAL [None]
  - HYPERTENSION [None]
  - HYPOTRICHOSIS [None]
  - INJECTION SITE PAIN [None]
  - MIDDLE EAR EFFUSION [None]
  - NASAL DRYNESS [None]
  - NERVOUSNESS [None]
  - PANIC ATTACK [None]
  - TOOTH INFECTION [None]
  - VERTIGO [None]
  - WEIGHT DECREASED [None]
  - WHITE BLOOD CELL COUNT DECREASED [None]
